FAERS Safety Report 8520181-8 (Version None)
Quarter: 2012Q3

REPORT INFORMATION
  Report Type: 
  Country: None (occurrence: None)
  Receive Date: 20120719
  Receipt Date: 20120716
  Transmission Date: 20120928
  Serious: No
  Sender: FDA-Public Use
  Company Number: US-PFIZER INC-2012171708

PATIENT
  Sex: Female

DRUGS (4)
  1. ZOCOR [Suspect]
     Dosage: UNK
  2. ARTHROTEC [Suspect]
     Dosage: UNK
     Dates: start: 20060101
  3. CELECOXIB [Suspect]
     Dosage: UNK
     Dates: start: 20100101
  4. XALATAN [Suspect]
     Dosage: UNK
     Dates: start: 20060101

REACTIONS (2)
  - NAUSEA [None]
  - OROPHARYNGEAL PAIN [None]
